FAERS Safety Report 5796821-3 (Version None)
Quarter: 2008Q3

REPORT INFORMATION
  Report Type: 
  Country: None (occurrence: None)
  Receive Date: 20080701
  Receipt Date: 20080626
  Transmission Date: 20090109
  Serious: Yes (Hospitalization)
  Sender: FDA-Public Use
  Company Number: AU-AMGEN-US244768

PATIENT
  Sex: Male

DRUGS (13)
  1. PANITUMUMAB [Suspect]
     Indication: SQUAMOUS CELL CARCINOMA
     Route: 042
     Dates: start: 20070823, end: 20070913
  2. CISPLATIN [Suspect]
     Route: 065
  3. FLUOROURACIL [Suspect]
     Route: 065
  4. EMEND [Concomitant]
     Route: 048
     Dates: start: 20070823
  5. DEXAMETHASONE [Concomitant]
     Route: 048
     Dates: start: 20070823
  6. DEXAMETHASONE [Concomitant]
     Route: 042
     Dates: start: 20070823
  7. GRANISETRON HCL [Concomitant]
     Route: 048
  8. GRANISETRON HCL [Concomitant]
     Route: 042
     Dates: start: 20070823
  9. PANTOPRAZOLE SODIUM [Concomitant]
     Route: 048
     Dates: start: 20070826
  10. LACTULOSE [Concomitant]
     Route: 048
     Dates: start: 20070815
  11. DOCUSATE [Concomitant]
     Route: 048
     Dates: start: 20070827
  12. LORAZEPAM [Concomitant]
     Route: 048
     Dates: start: 20070827
  13. PANADEINE [Concomitant]
     Route: 048
     Dates: start: 20070815

REACTIONS (1)
  - BRONCHITIS [None]
